FAERS Safety Report 5943500-5 (Version None)
Quarter: 2008Q4

REPORT INFORMATION
  Report Type: 
  Country: None (occurrence: None)
  Receive Date: 20081104
  Receipt Date: 20081017
  Transmission Date: 20090506
  Serious: Yes (Other)
  Sender: FDA-Public Use
  Company Number: 2008BM000195

PATIENT
  Age: 19 Year
  Sex: Female
  Weight: 60 kg

DRUGS (1)
  1. KUVAN [Suspect]
     Indication: PHENYLKETONURIA
     Dosage: 20 MG/KG; QD; PO
     Route: 048
     Dates: start: 20080822, end: 20080901

REACTIONS (5)
  - COUGH [None]
  - DYSPNOEA [None]
  - OROPHARYNGEAL PAIN [None]
  - RETCHING [None]
  - THROAT TIGHTNESS [None]
